FAERS Safety Report 5472353-7 (Version None)
Quarter: 2007Q3

REPORT INFORMATION
  Report Type: 
  Country: None (occurrence: None)
  Receive Date: 20070930
  Receipt Date: 20070919
  Transmission Date: 20080115
  Serious: Yes (Death, Hospitalization)
  Sender: FDA-Public Use
  Company Number: US-SHR-US-2007-028537

PATIENT
  Age: 65 Year
  Sex: Male

DRUGS (1)
  1. BETASERON [Suspect]
     Route: 058
     Dates: start: 19970620, end: 20070623

REACTIONS (1)
  - COLITIS [None]
